FAERS Safety Report 8885335 (Version 2)
Quarter: 2012Q4

REPORT INFORMATION
  Report Type: 
  Country: US (occurrence: US)
  Receive Date: 20121101
  Receipt Date: 20121206
  Transmission Date: 20130627
  Serious: No
  Sender: FDA-Public Use
  Company Number: US-B.I. PHARMACEUTICALS,INC./RIDGEFIELD-2012-BP-26931BP

PATIENT
  Sex: Female
  Weight: 87 kg

DRUGS (14)
  1. SPIRIVA [Suspect]
     Indication: CHRONIC OBSTRUCTIVE PULMONARY DISEASE
     Dosage: 18 mcg
     Route: 055
     Dates: start: 2011
  2. FISH OIL [Concomitant]
     Indication: SUPPLEMENTATION THERAPY
     Dosage: 2000 mg
     Route: 048
     Dates: start: 2009
  3. MICROZIDE [Concomitant]
     Indication: DIURETIC THERAPY
     Dosage: 12.5 NR
     Route: 048
     Dates: start: 2010
  4. LORAZEPAM [Concomitant]
     Indication: ANXIETY
     Dates: start: 1992
  5. BLACK COHOSH [Concomitant]
     Indication: MENOPAUSE
     Dosage: 525 mg
     Route: 048
     Dates: start: 2010
  6. HORSE CHESTNUT [Concomitant]
     Indication: DIURETIC THERAPY
     Route: 048
     Dates: start: 2010
  7. B 12 [Concomitant]
     Indication: SUPPLEMENTATION THERAPY
     Dosage: 2000 mcg
     Route: 048
     Dates: start: 2010
  8. BABY ASPIRIN [Concomitant]
     Indication: ANTICOAGULANT THERAPY
     Dosage: 81 mg
     Route: 048
     Dates: start: 200906
  9. LEVOTHYROXINE [Concomitant]
     Indication: THYROID DISORDER
     Dosage: 75 mcg
     Route: 048
     Dates: start: 1970
  10. B 6 [Concomitant]
     Indication: SUPPLEMENTATION THERAPY
     Dosage: 100 mg
     Route: 048
     Dates: start: 2010
  11. DULERA [Concomitant]
     Indication: CHRONIC OBSTRUCTIVE PULMONARY DISEASE
     Dosage: 4 puf
     Route: 055
     Dates: start: 2010
  12. LEXAPRO [Concomitant]
     Indication: MOOD SWINGS
     Dosage: 20 mg
     Route: 048
     Dates: start: 2002
  13. METOPROLOL [Concomitant]
     Indication: HYPERTENSION
     Dosage: 200 mg
     Route: 048
     Dates: start: 2008
  14. MELATONIN [Concomitant]
     Indication: INSOMNIA

REACTIONS (5)
  - Dyspnoea [Not Recovered/Not Resolved]
  - Gait disturbance [Not Recovered/Not Resolved]
  - Urinary incontinence [Not Recovered/Not Resolved]
  - Memory impairment [Not Recovered/Not Resolved]
  - Blood pressure increased [Not Recovered/Not Resolved]
